FAERS Safety Report 4619232-2 (Version None)
Quarter: 2005Q1

REPORT INFORMATION
  Report Type: 
  Country: None (occurrence: None)
  Receive Date: 20050318
  Receipt Date: 20050318
  Transmission Date: 20050727
  Serious: Yes (Hospitalization)
  Sender: FDA-Public Use
  Company Number: None

PATIENT
  Sex: Female
  Weight: 70.3075 kg

DRUGS (2)
  1. NIACIN [Suspect]
     Indication: BLOOD CHOLESTEROL INCREASED
     Dosage: PO [PRIOR TO ADMISSION]
     Route: 048
  2. ASPIRIN [Concomitant]

REACTIONS (2)
  - ERYTHEMA [None]
  - FLUSHING [None]
